FAERS Safety Report 8081087-4 (Version None)
Quarter: 2012Q1

REPORT INFORMATION
  Report Type: 
  Country: None (occurrence: None)
  Receive Date: 20120130
  Receipt Date: 20120123
  Transmission Date: 20120608
  Serious: Yes (Hospitalization, Other)
  Sender: FDA-Public Use
  Company Number: US-ABBOTT-12P-163-0896876-00

PATIENT
  Sex: Female
  Weight: 124.85 kg

DRUGS (11)
  1. METHOTREXATE [Concomitant]
     Indication: CROHN'S DISEASE
  2. LANTUS [Concomitant]
     Indication: DIABETES MELLITUS
  3. HUMIRA [Suspect]
     Indication: CROHN'S DISEASE
     Dates: start: 20100901, end: 20110201
  4. MERCAPTOPURINE [Suspect]
     Indication: CROHN'S DISEASE
     Dates: start: 20110301, end: 20110801
  5. ATIVAN [Concomitant]
     Indication: ANXIETY
  6. VICODIN [Concomitant]
     Indication: PAIN
     Dosage: 1-2 A DAY
  7. HUMIRA [Suspect]
     Dates: start: 20111001
  8. AMARYL [Concomitant]
     Indication: DIABETES MELLITUS
     Dosage: PILL
  9. VITAMIN D [Concomitant]
     Indication: VITAMIN SUPPLEMENTATION
  10. FOLIC ACID [Concomitant]
     Indication: VITAMIN SUPPLEMENTATION
  11. VITAMIN B-12 [Concomitant]
     Indication: VITAMIN SUPPLEMENTATION
     Route: 050

REACTIONS (12)
  - WEIGHT INCREASED [None]
  - FISTULA [None]
  - HOSPITALISATION [None]
  - MALAISE [None]
  - BLOOD POTASSIUM DECREASED [None]
  - RENAL DISORDER [None]
  - DRUG INEFFECTIVE [None]
  - DIARRHOEA [None]
  - WEIGHT DECREASED [None]
  - RASH [None]
  - HYPOPHAGIA [None]
  - NAUSEA [None]
